FAERS Safety Report 25467338 (Version 1)
Quarter: 2025Q2

REPORT INFORMATION
  Report Type: Spontaneous
  Country: US (occurrence: US)
  Receive Date: 20250623
  Receipt Date: 20250623
  Transmission Date: 20250716
  Serious: Yes (Other)
  Sender: ROCHE
  Company Number: US-ROCHE-10000318830

PATIENT
  Age: 48 Year
  Sex: Female

DRUGS (7)
  1. TRASTUZUMAB [Suspect]
     Active Substance: TRASTUZUMAB
     Indication: Breast cancer metastatic
     Route: 042
  2. TRASTUZUMAB [Suspect]
     Active Substance: TRASTUZUMAB
     Indication: Sickle cell disease
  3. PERTUZUMAB [Concomitant]
     Active Substance: PERTUZUMAB
     Indication: Breast cancer metastatic
  4. PERTUZUMAB [Concomitant]
     Active Substance: PERTUZUMAB
     Indication: Sickle cell disease
  5. PACLITAXEL [Concomitant]
     Active Substance: PACLITAXEL
     Indication: Breast cancer metastatic
  6. PACLITAXEL [Concomitant]
     Active Substance: PACLITAXEL
     Indication: Sickle cell disease
  7. LAPATINIB [Concomitant]
     Active Substance: LAPATINIB

REACTIONS (1)
  - Acute chest syndrome [Unknown]
